FAERS Safety Report 22038482 (Version 2)
Quarter: 2023Q2

REPORT INFORMATION
  Report Type: Report from Study
  Country: CA (occurrence: CA)
  Receive Date: 20230227
  Receipt Date: 20230508
  Transmission Date: 20230722
  Serious: Yes (Other)
  Sender: FDA-Public Use
  Company Number: CA-002147023-NVSC2023CA039479

PATIENT
  Age: 79 Year
  Sex: Female

DRUGS (1)
  1. HYRIMOZ [Suspect]
     Active Substance: ADALIMUMAB-ADAZ
     Indication: Rheumatoid arthritis
     Dosage: 40 MG
     Route: 058
     Dates: start: 20220922

REACTIONS (9)
  - Loss of consciousness [Recovered/Resolved]
  - Cerebrovascular accident [Unknown]
  - Slow speech [Recovering/Resolving]
  - Brain fog [Unknown]
  - Concussion [Unknown]
  - Face injury [Unknown]
  - Contusion [Unknown]
  - Fall [Unknown]
  - Aphasia [Recovering/Resolving]
